FAERS Safety Report 20188865 (Version 1)
Quarter: 2021Q4

REPORT INFORMATION
  Report Type: Spontaneous
  Country: HR (occurrence: None)
  Receive Date: 20211215
  Receipt Date: 20211215
  Transmission Date: 20220303
  Serious: Yes (Other)
  Sender: FDA-Public Use
  Company Number: 2021A863694

PATIENT
  Age: 62 Year
  Sex: Female
  Weight: 74 kg

DRUGS (10)
  1. FULVESTRANT [Suspect]
     Active Substance: FULVESTRANT
     Indication: Product used for unknown indication
     Dosage: 500 MG500.0MG UNKNOWN
     Route: 030
     Dates: start: 201505
  2. RIBOCICLIB [Suspect]
     Active Substance: RIBOCICLIB
     Indication: Benign breast neoplasm
     Route: 065
     Dates: start: 202104
  3. RIBOCICLIB [Suspect]
     Active Substance: RIBOCICLIB
     Indication: Benign breast neoplasm
     Route: 065
  4. EXEMESTANE [Suspect]
     Active Substance: EXEMESTANE
     Indication: Breast cancer metastatic
     Dosage: UNK
     Route: 065
     Dates: start: 201303
  5. METHOTREXATE [Concomitant]
     Active Substance: METHOTREXATE
     Indication: Product used for unknown indication
     Dosage: UNK
     Route: 065
  6. CYCLOPHOSPHAMIDE [Concomitant]
     Active Substance: CYCLOPHOSPHAMIDE
     Indication: Product used for unknown indication
     Dosage: UNK
     Route: 065
  7. CAPECITABINE [Concomitant]
     Active Substance: CAPECITABINE
     Indication: Product used for unknown indication
     Dosage: UNK (4 MONTHS TOTAL OF ADMINISTRATION WITH PARTIAL ALLEVIATION OF PROBLEMS)
     Route: 065
  8. VINORELBINE [Concomitant]
     Active Substance: VINORELBINE TARTRATE
     Indication: Product used for unknown indication
     Dosage: UNK (ABOUT 4 MONTHS, THEN FURTHER PROGRESSION IN THE LIVER)
     Route: 065
  9. ANASTROZOLE [Concomitant]
     Active Substance: ANASTROZOLE
     Indication: Product used for unknown indication
     Dosage: UNK
     Route: 065
  10. PACLITAXEL [Concomitant]
     Active Substance: PACLITAXEL
     Indication: Product used for unknown indication
     Dosage: UNK
     Route: 042

REACTIONS (12)
  - Metastases to liver [Unknown]
  - Neutropenia [Unknown]
  - Metastases to lymph nodes [Unknown]
  - Metastatic neoplasm [Unknown]
  - Malaise [Unknown]
  - Condition aggravated [Unknown]
  - Cough [Unknown]
  - Cholelithiasis [Unknown]
  - Dyspnoea [Unknown]
  - Osteolysis [Unknown]
  - Fatigue [Unknown]
  - Hepatomegaly [Unknown]

NARRATIVE: CASE EVENT DATE: 20191001
